FAERS Safety Report 7651181-8 (Version None)
Quarter: 2011Q3

REPORT INFORMATION
  Report Type: 
  Country: None (occurrence: None)
  Receive Date: 20110727
  Receipt Date: 20100712
  Transmission Date: 20111222
  Serious: Yes (Hospitalization, Other)
  Sender: FDA-Public Use
  Company Number: 009119

PATIENT
  Sex: Male

DRUGS (1)
  1. PLETAL [Suspect]
     Indication: INTERMITTENT CLAUDICATION
     Dosage: 100 MG, ORAL
     Route: 048
     Dates: start: 20100101, end: 20100101

REACTIONS (3)
  - PANCREATIC NEOPLASM [None]
  - CONVULSION [None]
  - HYPERGLYCAEMIA [None]
